FAERS Safety Report 11637989 (Version 1)
Quarter: 2015Q4

REPORT INFORMATION
  Report Type: Spontaneous
  Country: US (occurrence: US)
  Receive Date: 20151016
  Receipt Date: 20151016
  Transmission Date: 20160304
  Serious: No
  Sender: FDA-Public Use
  Company Number: US-INDIVIOR-RB-081682-2015

PATIENT
  Age: 56 Year
  Sex: Male

DRUGS (2)
  1. SUBOXONE [Suspect]
     Active Substance: BUPRENORPHINE HYDROCHLORIDE\NALOXONE HYDROCHLORIDE
     Indication: DRUG DEPENDENCE
     Dosage: UNK
     Route: 060
  2. SUBOXONE [Suspect]
     Active Substance: BUPRENORPHINE HYDROCHLORIDE\NALOXONE HYDROCHLORIDE
     Dosage: TWO 4 MG DOSES, UNK
     Route: 060
     Dates: start: 20150727

REACTIONS (4)
  - Psychomotor hyperactivity [Not Recovered/Not Resolved]
  - Gastrointestinal disorder [Recovered/Resolved]
  - Drug withdrawal syndrome [Recovered/Resolved]
  - Formication [Not Recovered/Not Resolved]
